FAERS Safety Report 4570151-X (Version None)
Quarter: 2005Q1

REPORT INFORMATION
  Report Type: 
  Country: None (occurrence: None)
  Receive Date: 20050131
  Receipt Date: 20050126
  Transmission Date: 20050727
  Serious: Yes (Hospitalization)
  Sender: FDA-Public Use
  Company Number: ZONI002097

PATIENT
  Age: 1 Year
  Sex: Male

DRUGS (1)
  1. ZONEGRAN [Suspect]
     Indication: CONVULSION
     Dosage: 25 MG, 1 IN 1 D, ORAL
     Route: 048
     Dates: start: 20041101, end: 20041201

REACTIONS (2)
  - BODY TEMPERATURE DECREASED [None]
  - MEDICATION ERROR [None]
